FAERS Safety Report 7112888-4 (Version None)
Quarter: 2010Q4

REPORT INFORMATION
  Report Type: 
  Country: None (occurrence: None)
  Receive Date: 20101119
  Receipt Date: 20100409
  Transmission Date: 20110411
  Serious: Yes (Other)
  Sender: FDA-Public Use
  Company Number: US-BRISTOL-MYERS SQUIBB COMPANY-15055841

PATIENT
  Age: 47 Year
  Sex: Female
  Weight: 77 kg

DRUGS (3)
  1. AVALIDE [Suspect]
     Indication: HYPERTENSION
     Dosage: 1 DF = 300/12.5MG.3 DOSE.
  2. HYDROCODONE [Concomitant]
  3. CHLORZOXAZONE [Concomitant]

REACTIONS (1)
  - BLINDNESS TRANSIENT [None]
